FAERS Safety Report 8426006-3 (Version None)
Quarter: 2012Q2

REPORT INFORMATION
  Report Type: 
  Country: None (occurrence: None)
  Receive Date: 20120611
  Receipt Date: 20120530
  Transmission Date: 20120825
  Serious: Yes (Other)
  Sender: FDA-Public Use
  Company Number: US-JNJFOC-20101202337

PATIENT
  Sex: Male

DRUGS (12)
  1. NAPROXEN (ALEVE) [Concomitant]
     Indication: BACK PAIN
     Route: 048
     Dates: start: 20100101
  2. ABIRATERONE ACETATE [Suspect]
     Route: 048
     Dates: start: 20100506
  3. LUPRON [Concomitant]
     Indication: PROSTATE CANCER
     Route: 030
     Dates: start: 20100407
  4. ABIRATERONE ACETATE [Suspect]
     Indication: PROSTATE CANCER METASTATIC
     Route: 048
     Dates: start: 20100407
  5. PREDNISONE TAB [Suspect]
     Indication: PROSTATE CANCER METASTATIC
     Route: 048
     Dates: start: 20100407
  6. PREDNISONE TAB [Suspect]
     Route: 048
     Dates: start: 20110113
  7. QUININE SULFATE [Concomitant]
     Indication: MUSCLE SPASMS
     Route: 048
     Dates: start: 20100601
  8. PREDNISONE TAB [Suspect]
     Route: 048
     Dates: start: 20101123
  9. LUPRON [Concomitant]
     Indication: HORMONE THERAPY
     Route: 030
     Dates: start: 20100407
  10. LUPRON [Concomitant]
     Route: 030
     Dates: start: 20090121
  11. ABIRATERONE ACETATE [Suspect]
     Route: 048
     Dates: start: 20110113
  12. LUPRON [Concomitant]
     Route: 030
     Dates: start: 20090121

REACTIONS (1)
  - MYOCARDIAL ISCHAEMIA [None]
